FAERS Safety Report 17297965 (Version 1)
Quarter: 2020Q1

REPORT INFORMATION
  Report Type: Spontaneous
  Country: US (occurrence: US)
  Receive Date: 20200102
  Receipt Date: 20200102
  Transmission Date: 20200409
  Serious: No
  Sender: FDA-Public Use
  Company Number: None

PATIENT
  Age: 61 Year
  Sex: Female
  Weight: 173.27 kg

DRUGS (6)
  1. OXYBUTYNIN 5MG [Suspect]
     Active Substance: OXYBUTYNIN
     Indication: STRESS URINARY INCONTINENCE
     Route: 048
     Dates: start: 20080227, end: 20090123
  2. SOLIFENACIN 10MG [Suspect]
     Active Substance: SOLIFENACIN SUCCINATE
     Indication: STRESS URINARY INCONTINENCE
     Route: 048
     Dates: start: 201906, end: 201908
  3. SOLIFENACIN 10MG [Suspect]
     Active Substance: SOLIFENACIN SUCCINATE
     Indication: POLLAKIURIA
     Route: 048
     Dates: start: 201906, end: 201908
  4. OXYBUTYNIN 5MG [Suspect]
     Active Substance: OXYBUTYNIN
     Indication: NOCTURIA
     Route: 048
     Dates: start: 20080227, end: 20090123
  5. OXYBUTYNIN 5MG [Suspect]
     Active Substance: OXYBUTYNIN
     Indication: POLLAKIURIA
     Route: 048
     Dates: start: 20080227, end: 20090123
  6. SOLIFENACIN 10MG [Suspect]
     Active Substance: SOLIFENACIN SUCCINATE
     Indication: NOCTURIA
     Route: 048
     Dates: start: 201906, end: 201908

REACTIONS (4)
  - Nocturia [None]
  - Treatment failure [None]
  - Product substitution issue [None]
  - Therapeutic product effect decreased [None]

NARRATIVE: CASE EVENT DATE: 20190822
